FAERS Safety Report 9013032 (Version 1)
Quarter: 2013Q1

REPORT INFORMATION
  Report Type: Spontaneous
  Country: US (occurrence: US)
  Receive Date: 20130114
  Receipt Date: 20130114
  Transmission Date: 20140127
  Serious: Yes (Death)
  Sender: FDA-Public Use
  Company Number: US-009507513-1301USA001910

PATIENT
  Sex: Male

DRUGS (14)
  1. MONTELUKAST SODIUM [Suspect]
  2. [THERAPY UNSPECIFIED] [Suspect]
  3. ACETAMINOPHEN [Suspect]
  4. HUMULIN [Suspect]
     Dosage: 100.0 IU/ML
  5. FOSAMAX [Suspect]
     Dosage: 70 MG, ONCE WEEKLY
  6. LISINOPRIL [Suspect]
  7. NYSTATIN [Suspect]
  8. SERETIDE [Suspect]
     Dosage: RESPIRATORY (INHALATION)
  9. TRAMADOL HYDROCHLORIDE [Suspect]
  10. BUMETANIDE [Suspect]
  11. ALBUTEROL [Suspect]
     Dosage: RESPIRATORY (INHALATION)
  12. HUMALOG [Suspect]
     Dosage: 100.0 IU/ML
  13. HUMULIN [Suspect]
     Dosage: 100.0 IU/ML
  14. TIOTROPIUM BROMIDE [Suspect]

REACTIONS (1)
  - Lobar pneumonia [Fatal]
